FAERS Safety Report 15423898 (Version 1)
Quarter: 2018Q3

REPORT INFORMATION
  Report Type: Spontaneous
  Country: GB (occurrence: GB)
  Receive Date: 20180925
  Receipt Date: 20180925
  Transmission Date: 20181010
  Serious: Yes (Death, Hospitalization)
  Sender: FDA-Public Use
  Company Number: GB-TEVA-2018-GB-958194

PATIENT
  Age: 77 Year
  Sex: Female
  Weight: 58 kg

DRUGS (10)
  1. SALBUTAMOL [Concomitant]
     Active Substance: ALBUTEROL
     Route: 065
  2. DACARBAZINE. [Concomitant]
     Active Substance: DACARBAZINE
     Indication: HODGKIN^S DISEASE NODULAR SCLEROSIS
     Dosage: OVER 1 HOUR.
     Route: 042
     Dates: start: 20160921
  3. VINBLASTINE [Concomitant]
     Active Substance: VINBLASTINE
     Indication: HODGKIN^S DISEASE NODULAR SCLEROSIS
     Dosage: INFUSION OVER 5?10 MINUTES.
     Route: 042
     Dates: start: 20160921
  4. ANTIBIOTICS [Concomitant]
     Active Substance: UNSPECIFIED INGREDIENT
     Indication: DEEP VEIN THROMBOSIS
     Route: 065
     Dates: start: 201701
  5. DEXAMETHASONE. [Concomitant]
     Active Substance: DEXAMETHASONE
     Indication: ANTIEMETIC SUPPORTIVE CARE
     Dosage: TAKE ONE HOUR BEFORE CHEMOTHERAPY.
     Route: 048
  6. BLEOMYCIN [Suspect]
     Active Substance: BLEOMYCIN SULFATE
     Indication: HODGKIN^S DISEASE NODULAR SCLEROSIS
     Dosage: OVER 5 MINUTES INTO SIDE PORT OF FREE FLOWING SODIUM CHLORIDE.
     Route: 040
     Dates: start: 20160925, end: 20170113
  7. TINZAPARIN [Concomitant]
     Active Substance: TINZAPARIN
     Indication: DEEP VEIN THROMBOSIS
     Route: 065
     Dates: start: 20170125
  8. ONDANSETRON [Concomitant]
     Active Substance: ONDANSETRON
     Indication: ANTIEMETIC SUPPORTIVE CARE
     Dosage: TAKE ONE HOUR BEFORE CHEMOTHERAPY.
     Route: 048
  9. DOXORUBICIN [Concomitant]
     Active Substance: DOXORUBICIN
     Indication: HODGKIN^S DISEASE NODULAR SCLEROSIS
     Dosage: OVER 5 MINUTES INTO SIDE PORT OF FREE FLOWING SODIUM CHLORIDE.
     Route: 040
     Dates: start: 20160921
  10. SODIUM CHLORIDE. [Concomitant]
     Active Substance: SODIUM CHLORIDE
     Dosage: TO BE USED AS A FLUSH OR FOR ADMINISTRATION INTO SIDE ARM, NOT FOR HYDRATION.
     Route: 042

REACTIONS (18)
  - Diarrhoea [Fatal]
  - Asthenia [Fatal]
  - Lower respiratory tract infection [Fatal]
  - Erythema [Fatal]
  - Neuropathy peripheral [Fatal]
  - Pleural effusion [Fatal]
  - Peripheral swelling [Fatal]
  - Dyspnoea [Fatal]
  - Phlebitis [Fatal]
  - Auscultation [Fatal]
  - Crepitations [Fatal]
  - Cough [Fatal]
  - Hyperhidrosis [Fatal]
  - Pneumocystis jirovecii pneumonia [Fatal]
  - Dizziness [Fatal]
  - Toxicity to various agents [Fatal]
  - Photosensitivity reaction [Fatal]
  - Respiratory failure [Fatal]

NARRATIVE: CASE EVENT DATE: 20161130
